FAERS Safety Report 10189786 (Version 1)
Quarter: 2014Q2

REPORT INFORMATION
  Report Type: Spontaneous
  Country: US (occurrence: US)
  Receive Date: 20140522
  Receipt Date: 20140522
  Transmission Date: 20141212
  Serious: Yes (Other)
  Sender: FDA-Public Use
  Company Number: US-SA-2013SA116181

PATIENT
  Age: 84 Year
  Sex: Male

DRUGS (6)
  1. LANTUS [Suspect]
     Indication: TYPE 2 DIABETES MELLITUS
     Route: 058
  2. NOVOLOG [Suspect]
     Route: 065
  3. COUMADIN [Concomitant]
  4. LEVOTHYROXINE [Concomitant]
  5. CARDIAC THERAPY [Concomitant]
  6. ANTIHYPERTENSIVES [Concomitant]

REACTIONS (4)
  - Hypoglycaemic unconsciousness [Unknown]
  - Somnolence [Unknown]
  - Blood glucose decreased [Unknown]
  - Blood glucose increased [Unknown]
